FAERS Safety Report 6211839-4 (Version None)
Quarter: 2009Q2

REPORT INFORMATION
  Report Type: 
  Country: None (occurrence: None)
  Receive Date: 20090602
  Receipt Date: 20090106
  Transmission Date: 20091009
  Serious: Yes (Hospitalization)
  Sender: FDA-Public Use
  Company Number: FR-PFIZER INC-2008152305

PATIENT
  Age: 38 Year

DRUGS (7)
  1. LYRICA [Suspect]
     Indication: NEURALGIA
     Dosage: 75 MG, 2X/DAY
     Dates: start: 20080512, end: 20080530
  2. ZOLPIDEM TARTRATE [Suspect]
  3. ANAFRANIL [Suspect]
  4. PROZAC [Concomitant]
     Indication: DEPRESSION
     Dosage: UNK
     Route: 048
     Dates: start: 20031118, end: 20080520
  5. CELESTENE [Concomitant]
     Indication: SCIATICA
     Dosage: 60 MG, UNK
     Route: 048
     Dates: start: 20080512, end: 20080517
  6. LANSOPRAZOLE [Concomitant]
     Indication: PROPHYLAXIS
     Dosage: 30 MG, UNK
     Route: 048
     Dates: start: 20080512, end: 20080517
  7. TETRAZEPAM [Concomitant]
     Indication: SCIATICA
     Dosage: 50 MG, UNK
     Route: 048
     Dates: start: 20080512, end: 20080517

REACTIONS (12)
  - AGITATION [None]
  - DEPRESSION [None]
  - FATIGUE [None]
  - HISTRIONIC PERSONALITY DISORDER [None]
  - INTENTIONAL OVERDOSE [None]
  - INTENTIONAL SELF-INJURY [None]
  - MALAISE [None]
  - MORBID THOUGHTS [None]
  - PERSONALITY DISORDER [None]
  - SCIATICA [None]
  - SUICIDAL IDEATION [None]
  - SUICIDE ATTEMPT [None]
